FAERS Safety Report 10913126 (Version 1)
Quarter: 2015Q1

REPORT INFORMATION
  Report Type: Spontaneous
  Country: US (occurrence: None)
  Receive Date: 20150311
  Receipt Date: 20150311
  Transmission Date: 20150721
  Serious: No
  Sender: FDA-Public Use
  Company Number: 1210513-2015-00065

PATIENT
  Age: 57 Year
  Sex: Female
  Weight: 108.86 kg

DRUGS (1)
  1. WALMART EQUATE ORASOL (SHEFFIELD PHARMACEUTICALS) [Suspect]
     Active Substance: BENZOCAINE
     Indication: ANALGESIC THERAPY
     Dosage: 1X ORAL 047?
     Route: 048
     Dates: start: 20120723, end: 20120723

REACTIONS (1)
  - Hypoaesthesia oral [None]

NARRATIVE: CASE EVENT DATE: 20120726
